FAERS Safety Report 23672038 (Version 1)
Quarter: 2024Q1

REPORT INFORMATION
  Report Type: Spontaneous
  Country: US (occurrence: US)
  Receive Date: 20240326
  Receipt Date: 20240326
  Transmission Date: 20240410
  Serious: No
  Sender: FDA-Public Use
  Company Number: US-ALCON LABORATORIES-ALC2023US004470

PATIENT
  Age: 51 Year
  Sex: Female

DRUGS (1)
  1. PATADAY ONCE DAILY RELIEF [Suspect]
     Active Substance: OLOPATADINE HYDROCHLORIDE
     Indication: Eye pruritus
     Dosage: 1X DAY, 1 DROP PER EYE
     Route: 047
     Dates: start: 20230924, end: 20230927

REACTIONS (1)
  - Drug ineffective [Unknown]
